FAERS Safety Report 5242853-3 (Version None)
Quarter: 2007Q1

REPORT INFORMATION
  Report Type: 
  Country: None (occurrence: None)
  Receive Date: 20070215
  Receipt Date: 20070208
  Transmission Date: 20070707
  Serious: Yes (Disabling)
  Sender: FDA-Public Use
  Company Number: 2007SP000704

PATIENT
  Age: 57 Year
  Sex: Female
  Weight: 160.5733 kg

DRUGS (5)
  1. INTRON A [Suspect]
     Indication: MELANOMA RECURRENT
     Dosage: SEE IMAGE
     Dates: start: 19980727, end: 19980821
  2. INTRON A [Suspect]
     Indication: MELANOMA RECURRENT
     Dosage: SEE IMAGE
     Dates: start: 19980824, end: 19990723
  3. ACETAMINOPHEN [Concomitant]
  4. INDOMETHACIN [Concomitant]
  5. COUMADIN [Concomitant]

REACTIONS (6)
  - ARACHNOID CYST [None]
  - COGNITIVE DISORDER [None]
  - DEPRESSION [None]
  - EMOTIONAL DISORDER [None]
  - MEMORY IMPAIRMENT [None]
  - NEUROTOXICITY [None]
